FAERS Safety Report 9470132 (Version 1)
Quarter: 2013Q3

REPORT INFORMATION
  Report Type: Spontaneous
  Country: US (occurrence: None)
  Receive Date: 20130820
  Receipt Date: 20130820
  Transmission Date: 20140515
  Serious: Yes (Disabling)
  Sender: FDA-Public Use
  Company Number: None

PATIENT
  Age: 73 Year
  Sex: Male
  Weight: 92.99 kg

DRUGS (1)
  1. VENTOLIN INHALER [Suspect]
     Indication: WHEEZING
     Dosage: 2 PUFFS WHEN NEEDED?THREE TIMES DAILY?INHALATION

REACTIONS (4)
  - Nervousness [None]
  - Sleep apnoea syndrome [None]
  - Depression [None]
  - Psychomotor hyperactivity [None]
